FAERS Safety Report 17967413 (Version 1)
Quarter: 2020Q3

REPORT INFORMATION
  Report Type: Spontaneous
  Country: DE (occurrence: DE)
  Receive Date: 20200701
  Receipt Date: 20200701
  Transmission Date: 20201103
  Serious: Yes (Hospitalization)
  Sender: FDA-Public Use
  Company Number: DE-TEVA-2020-DE-1793101

PATIENT
  Age: 60 Year
  Sex: Male

DRUGS (7)
  1. CISPLATIN. [Suspect]
     Active Substance: CISPLATIN
     Dosage: 50 MG, ACCORDING TO THE SCHEME
  2. NUTRIFLEX LIPID PERI 1,875L [Concomitant]
     Dosage: 1 DOSAGE FORMS DAILY; NK MG, 1?0?0?0,
     Route: 042
  3. ONDANSETRON [Concomitant]
     Active Substance: ONDANSETRON
     Dosage: 16 MILLIGRAM DAILY; 1?0?1?0
  4. MCP [Concomitant]
     Active Substance: METOCLOPRAMIDE HYDROCHLORIDE
     Dosage: 30 MILLIGRAM DAILY; 1?1?1?0
  5. GEMCITABINE. [Suspect]
     Active Substance: GEMCITABINE
     Dosage: 1000 MG, ACCORDING TO THE SCHEME
  6. PANTOPRAZOL [Concomitant]
     Active Substance: PANTOPRAZOLE SODIUM
     Dosage: 40 MILLIGRAM DAILY;  0?0?1?0
  7. LACTULOSE. [Concomitant]
     Active Substance: LACTULOSE
     Dosage: 12 GTT DAILY;  1?0?0?0

REACTIONS (5)
  - Hyperhidrosis [Unknown]
  - Pyrexia [Unknown]
  - Sepsis [Unknown]
  - Fatigue [Unknown]
  - General physical health deterioration [Unknown]
